FAERS Safety Report 9028455 (Version 1)
Quarter: 2013Q1

REPORT INFORMATION
  Report Type: Spontaneous
  Country: IT (occurrence: IT)
  Receive Date: 20130124
  Receipt Date: 20130124
  Transmission Date: 20140127
  Serious: Yes (Hospitalization)
  Sender: FDA-Public Use
  Company Number: IT-B.I. PHARMACEUTICALS,INC./RIDGEFIELD-2013-IT-00028IT

PATIENT
  Age: 78 Year
  Sex: Female

DRUGS (3)
  1. MELOXICAM [Suspect]
     Indication: OSTEOARTHRITIS
     Route: 048
     Dates: start: 20120701, end: 20121029
  2. TACHIDOL [Suspect]
     Indication: OSTEOARTHRITIS
     Dosage: STRENGTH: 500MG/30MG; 2 POSOLOGIC UNITS DAILY
     Route: 048
     Dates: start: 20120701, end: 20121029
  3. ARCOXIA [Suspect]
     Indication: OSTEOARTHRITIS
     Route: 048
     Dates: start: 20120701, end: 20121029

REACTIONS (2)
  - Lung disorder [Recovered/Resolved]
  - Drug-induced liver injury [Recovered/Resolved]
